FAERS Safety Report 22336907 (Version 1)
Quarter: 2023Q2

REPORT INFORMATION
  Report Type: Spontaneous
  Country: US (occurrence: None)
  Receive Date: 20230518
  Receipt Date: 20230518
  Transmission Date: 20230722
  Serious: Yes (Hospitalization, Other)
  Sender: FDA-Public Use
  Company Number: US-Merck Healthcare KGaA-9401480

PATIENT
  Age: 86 Year
  Sex: Female

DRUGS (1)
  1. LEVOTHYROXINE [Suspect]
     Active Substance: LEVOTHYROXINE
     Indication: Hypothyroidism

REACTIONS (7)
  - Depression [Unknown]
  - Suicide attempt [Unknown]
  - Anxiety [Unknown]
  - Tachycardia [Recovering/Resolving]
  - Tri-iodothyronine increased [Unknown]
  - Thyroxine free increased [Recovered/Resolved]
  - Intentional overdose [Unknown]
